FAERS Safety Report 23695380 (Version 1)
Quarter: 2024Q2

REPORT INFORMATION
  Report Type: Spontaneous
  Country: US (occurrence: US)
  Receive Date: 20240402
  Receipt Date: 20240402
  Transmission Date: 20240716
  Serious: No
  Sender: FDA-Public Use
  Company Number: US-JNJFOC-20240328101

PATIENT
  Sex: Female

DRUGS (1)
  1. MENS ROGAINE EXTRA STRENGTH [Suspect]
     Active Substance: MINOXIDIL
     Indication: Accidental exposure to product
     Route: 061

REACTIONS (5)
  - Accidental exposure to product [Unknown]
  - Product use issue [Unknown]
  - Product residue present [Unknown]
  - Hair colour changes [Unknown]
  - Hair growth abnormal [Unknown]
